FAERS Safety Report 5477843-9 (Version None)
Quarter: 2007Q4

REPORT INFORMATION
  Report Type: 
  Country: None (occurrence: None)
  Receive Date: 20071004
  Receipt Date: 20070921
  Transmission Date: 20080405
  Serious: No
  Sender: FDA-Public Use
  Company Number: US-BOEHRINGER INGELHEIM PHARMACEUTICALS, INC.-2007-BP-21487BP

PATIENT
  Age: 78 Year
  Sex: Male

DRUGS (4)
  1. ZANTAC 150 [Suspect]
     Indication: DYSPEPSIA
     Route: 048
     Dates: start: 20050101
  2. ZANTAC 150 [Suspect]
  3. ATIVAN [Concomitant]
  4. BENTYL [Concomitant]

REACTIONS (1)
  - MUSCULAR WEAKNESS [None]
